FAERS Safety Report 9780817 (Version 2)
Quarter: 2014Q1

REPORT INFORMATION
  Report Type: Report from Study
  Country: CO (occurrence: CO)
  Receive Date: 20131224
  Receipt Date: 20140106
  Transmission Date: 20141002
  Serious: Yes (Hospitalization)
  Sender: FDA-Public Use
  Company Number: CO-SA-2013SA131026

PATIENT
  Age: 53 Year
  Sex: Female

DRUGS (5)
  1. LANTUS [Suspect]
     Indication: DIABETES MELLITUS
     Dosage: DOSE:12 UNIT(S)
     Route: 058
     Dates: start: 20131123
  2. NOVORAPID [Concomitant]
     Indication: DIABETES MELLITUS
     Dosage: DOSE:3 UNIT(S)
     Route: 058
     Dates: end: 20131209
  3. SPIRONOLACTONE [Concomitant]
     Indication: HYPERTENSION
     Route: 048
  4. EXFORGE [Concomitant]
     Indication: HYPERTENSION
     Route: 048
  5. LYRICA [Concomitant]
     Indication: DIABETIC NEUROPATHY
     Route: 048

REACTIONS (1)
  - Diabetic foot [Recovered/Resolved]
